FAERS Safety Report 4614944-9 (Version None)
Quarter: 2005Q1

REPORT INFORMATION
  Report Type: 
  Country: None (occurrence: None)
  Receive Date: 20050315
  Receipt Date: 20050302
  Transmission Date: 20050727
  Serious: Yes (Other)
  Sender: FDA-Public Use
  Company Number: S05-USA-01276-01

PATIENT

DRUGS (1)
  1. LEXAPRO [Suspect]
     Indication: MAJOR DEPRESSION

REACTIONS (2)
  - AKATHISIA [None]
  - TARDIVE DYSKINESIA [None]
